FAERS Safety Report 17925822 (Version 2)
Quarter: 2020Q4

REPORT INFORMATION
  Report Type: Report from Study
  Country: ES (occurrence: ES)
  Receive Date: 20200622
  Receipt Date: 20201106
  Transmission Date: 20210113
  Serious: Yes (Hospitalization, Other)
  Sender: FDA-Public Use
  Company Number: ES-TEVA-2020-ES-1791525

PATIENT
  Age: 63 Year
  Sex: Female
  Weight: 75 kg

DRUGS (3)
  1. POLATUZUMAB VEDOTIN. [Interacting]
     Active Substance: POLATUZUMAB VEDOTIN
     Indication: DIFFUSE LARGE B-CELL LYMPHOMA
     Dosage: 1.8 MG/KG, EVERY 21 DAYS
     Route: 042
     Dates: start: 20190923, end: 20191014
  2. RITUXIMAB. [Interacting]
     Active Substance: RITUXIMAB
     Indication: DIFFUSE LARGE B-CELL LYMPHOMA
     Dosage: 375 MG/M2, EVERY 21 DAYS
     Route: 042
     Dates: start: 20190923, end: 20191014
  3. BENDAMUSTINE HYDROCHLORIDE. [Suspect]
     Active Substance: BENDAMUSTINE HYDROCHLORIDE
     Indication: DIFFUSE LARGE B-CELL LYMPHOMA
     Dosage: 90 MG/M2,  (21 DAY)
     Route: 042
     Dates: start: 20190923, end: 20191014

REACTIONS (8)
  - Pancytopenia [Recovered/Resolved]
  - Fungal infection [Recovered/Resolved]
  - Drug interaction [Unknown]
  - Bacterial infection [Recovered/Resolved]
  - Mucosal infection [Recovered/Resolved]
  - Mucosal inflammation [Recovered/Resolved]
  - Herpes virus infection [Recovered/Resolved]
  - Product use in unapproved indication [Unknown]

NARRATIVE: CASE EVENT DATE: 20190923
